FAERS Safety Report 7101231-2 (Version None)
Quarter: 2010Q4

REPORT INFORMATION
  Report Type: 
  Country: None (occurrence: None)
  Receive Date: 20101115
  Receipt Date: 20101102
  Transmission Date: 20110411
  Serious: No
  Sender: FDA-Public Use
  Company Number: KR-JNJFOC-20101100926

PATIENT
  Age: 51 Year
  Sex: Female

DRUGS (4)
  1. DUROGESIC D TARNS [Suspect]
     Indication: MUSCULOSKELETAL PAIN
     Route: 062
  2. LOVAZA [Concomitant]
     Indication: ILL-DEFINED DISORDER
     Route: 065
  3. OSTEOPOROSIS MEDICINE [Concomitant]
     Indication: OSTEOPOROSIS
     Route: 065
  4. CHOLESTEROL LOWERING MEDICATION [Concomitant]
     Indication: BLOOD CHOLESTEROL
     Route: 065

REACTIONS (2)
  - DIZZINESS [None]
  - WRONG TECHNIQUE IN DRUG USAGE PROCESS [None]
